FAERS Safety Report 7345223-7 (Version None)
Quarter: 2011Q1

REPORT INFORMATION
  Report Type: 
  Country: None (occurrence: None)
  Receive Date: 20110310
  Receipt Date: 20110228
  Transmission Date: 20110831
  Serious: Yes (Death)
  Sender: FDA-Public Use
  Company Number: DE-ACTELION-A-CH2011-45616

PATIENT
  Sex: Male

DRUGS (14)
  1. AMILORIDE HYDROCHLORIDE [Concomitant]
  2. MARCUMAR [Concomitant]
  3. VERAPAMIL [Concomitant]
  4. AMIODARONE HCL [Concomitant]
  5. TORASEMIDE [Concomitant]
  6. ZYLORIC [Concomitant]
  7. TRACLEER [Suspect]
     Indication: PULMONARY HYPERTENSION
     Dosage: 125 MG, BID
     Route: 048
     Dates: start: 20090109, end: 20101226
  8. AQUAPHOR [Concomitant]
  9. NOVODIGAL [Concomitant]
  10. OXYGEN [Concomitant]
  11. INSPRA [Concomitant]
  12. KALINOR [Concomitant]
  13. SPIRIVA [Concomitant]
  14. TRIAMTERENE AND HYDROCHLOROTHIAZIDE [Concomitant]

REACTIONS (4)
  - CIRCULATORY COLLAPSE [None]
  - GENERAL PHYSICAL HEALTH DETERIORATION [None]
  - LOSS OF CONSCIOUSNESS [None]
  - CARDIAC FAILURE [None]
